FAERS Safety Report 6519082-6 (Version None)
Quarter: 2009Q4

REPORT INFORMATION
  Report Type: 
  Country: None (occurrence: None)
  Receive Date: 20091228
  Receipt Date: 20091218
  Transmission Date: 20100525
  Serious: Yes (Death, Hospitalization, Other)
  Sender: FDA-Public Use
  Company Number: CH-ROCHE-666138

PATIENT
  Sex: Female
  Weight: 67 kg

DRUGS (5)
  1. AVASTIN [Suspect]
     Dosage: FREQUENCY: SINGLE, FORM: INFUSION
     Route: 042
     Dates: start: 20090608, end: 20090608
  2. XELODA [Suspect]
     Route: 048
     Dates: start: 20090608, end: 20091118
  3. ELOXATIN [Concomitant]
     Route: 042
     Dates: start: 20090608, end: 20091011
  4. SOLU-MEDROL [Concomitant]
     Indication: ANTIEMETIC SUPPORTIVE CARE
     Route: 042
     Dates: start: 20090608, end: 20091011
  5. ALOXI [Concomitant]
     Indication: ANTIEMETIC SUPPORTIVE CARE
     Route: 042
     Dates: start: 20090608, end: 20091011

REACTIONS (3)
  - ARRHYTHMIA [None]
  - EMBOLIC CEREBRAL INFARCTION [None]
  - MALIGNANT NEOPLASM PROGRESSION [None]
